FAERS Safety Report 7026863-1 (Version None)
Quarter: 2010Q4

REPORT INFORMATION
  Report Type: 
  Country: None (occurrence: None)
  Receive Date: 20101004
  Receipt Date: 20100929
  Transmission Date: 20110411
  Serious: Yes (Death, Hospitalization)
  Sender: FDA-Public Use
  Company Number: A0835812A

PATIENT
  Age: 62 Year
  Sex: Female
  Weight: 74.5 kg

DRUGS (4)
  1. AVANDIA [Suspect]
     Dosage: 4MG PER DAY
     Route: 048
     Dates: end: 20020310
  2. GLUCOPHAGE [Concomitant]
     Dates: end: 20020310
  3. INSULIN [Concomitant]
  4. PREMPRO [Concomitant]

REACTIONS (4)
  - ACUTE RESPIRATORY DISTRESS SYNDROME [None]
  - DYSPNOEA [None]
  - FLUID RETENTION [None]
  - INTESTINAL ISCHAEMIA [None]
